FAERS Safety Report 20170020 (Version 1)
Quarter: 2021Q4

REPORT INFORMATION
  Report Type: Spontaneous
  Country: SG (occurrence: SG)
  Receive Date: 20211210
  Receipt Date: 20211210
  Transmission Date: 20220304
  Serious: Yes (Hospitalization, Other)
  Sender: FDA-Public Use
  Company Number: SG-ABBVIE-21K-141-4188576-00

PATIENT
  Age: 68 Year
  Sex: Male

DRUGS (7)
  1. VALPROATE SODIUM [Suspect]
     Active Substance: VALPROATE SODIUM
     Indication: Bipolar I disorder
     Dosage: UNK
     Route: 065
  2. LITHIUM [Suspect]
     Active Substance: LITHIUM
     Indication: Bipolar I disorder
     Dosage: 1000-1500MG
     Route: 065
  3. LITHIUM [Suspect]
     Active Substance: LITHIUM
     Route: 065
  4. LITHIUM [Suspect]
     Active Substance: LITHIUM
     Route: 065
  5. OLANZAPINE [Suspect]
     Active Substance: OLANZAPINE
     Indication: Bipolar I disorder
     Dosage: UNK
     Route: 065
  6. QUETIAPINE FUMARATE [Suspect]
     Active Substance: QUETIAPINE FUMARATE
     Indication: Bipolar I disorder
     Dosage: UNK
     Route: 065
  7. HALOPERIDOL [Concomitant]
     Active Substance: HALOPERIDOL
     Indication: Product used for unknown indication

REACTIONS (3)
  - Atrioventricular block second degree [Recovered/Resolved]
  - Atrioventricular block second degree [Recovered/Resolved]
  - Drug ineffective [Unknown]
